FAERS Safety Report 18537900 (Version 2)
Quarter: 2020Q4

REPORT INFORMATION
  Report Type: Report from Study
  Country: None (occurrence: US)
  Receive Date: 20201124
  Receipt Date: 20201231
  Transmission Date: 20210114
  Serious: Yes (Other)
  Sender: FDA-Public Use
  Company Number: US-ABBVIE-20K-163-3656514-00

PATIENT
  Sex: Female

DRUGS (2)
  1. HUMIRA [Suspect]
     Active Substance: ADALIMUMAB
     Dosage: CF
     Route: 058
  2. HUMIRA [Suspect]
     Active Substance: ADALIMUMAB
     Indication: RHEUMATOID ARTHRITIS
     Dosage: CF
     Route: 058

REACTIONS (5)
  - Arthralgia [Not Recovered/Not Resolved]
  - Lower limb fracture [Recovered/Resolved]
  - Staphylococcal infection [Unknown]
  - Joint stiffness [Not Recovered/Not Resolved]
  - Cyst [Recovered/Resolved]

NARRATIVE: CASE EVENT DATE: 2020
